FAERS Safety Report 7598221-2 (Version None)
Quarter: 2011Q3

REPORT INFORMATION
  Report Type: 
  Country: None (occurrence: None)
  Receive Date: 20110708
  Receipt Date: 20110629
  Transmission Date: 20111222
  Serious: Yes (Other)
  Sender: FDA-Public Use
  Company Number: US-JNJFOC-20100403535

PATIENT
  Age: 42 Year
  Sex: Female

DRUGS (3)
  1. ACETAMINOPHEN [Suspect]
     Indication: ARTHRITIS
     Route: 048
     Dates: start: 20100326, end: 20100330
  2. ACETAMINOPHEN [Suspect]
     Indication: FIBROMYALGIA
     Route: 048
     Dates: start: 20100326, end: 20100330
  3. ACETAMINOPHEN [Suspect]
     Indication: SLEEP DISORDER THERAPY
     Route: 048
     Dates: start: 20100326, end: 20100330

REACTIONS (7)
  - HAEMATOCHEZIA [None]
  - ABDOMINAL DISCOMFORT [None]
  - DECREASED APPETITE [None]
  - DIARRHOEA [None]
  - COLITIS [None]
  - PRODUCT ODOUR ABNORMAL [None]
  - NAUSEA [None]
